FAERS Safety Report 24347799 (Version 1)
Quarter: 2024Q3

REPORT INFORMATION
  Report Type: Spontaneous
  Country: US (occurrence: US)
  Receive Date: 20240922
  Receipt Date: 20240922
  Transmission Date: 20241017
  Serious: No
  Sender: MERCK
  Company Number: US-009507513-2409USA006375

PATIENT
  Age: 4 Year

DRUGS (5)
  1. VAQTA [Suspect]
     Active Substance: HEPATITIS A VIRUS STRAIN CR 326F ANTIGEN (FORMALDEHYDE INACTIVATED)
     Indication: Prophylaxis
     Dates: start: 20240917
  2. STERILE DILUENT (WATER) [Suspect]
     Active Substance: WATER
     Dosage: ONE ADDITIONAL DOSE
     Dates: start: 20240917, end: 20240917
  3. PROQUAD [Suspect]
     Active Substance: MEASLES VIRUS STRAIN ENDERS^ ATTENUATED EDMONSTON LIVE ANTIGEN\MUMPS VIRUS STRAIN B LEVEL JERYL LYNN
     Indication: Prophylaxis
     Dates: start: 20240917
  4. VAXNEUVANCE [Suspect]
     Active Substance: CORYNEBACTERIUM DIPHTHERIAE CRM197 PROTEIN\STREPTOCOCCUS PNEUMONIAE TYPE 1 CAPSULAR POLYSACCHARIDE D
     Indication: Prophylaxis
     Dates: start: 20240917
  5. PEDVAXHIB [Suspect]
     Active Substance: HAEMOPHILUS INFLUENZAE TYPE B CAPSULAR POLYSACCHARIDE MENINGOCOCCAL OUTER MEMBRANE PROTEIN CONJUGATE
     Indication: Prophylaxis
     Dates: start: 20240917

REACTIONS (2)
  - Extra dose administered [Unknown]
  - No adverse event [Unknown]

NARRATIVE: CASE EVENT DATE: 20240917
